FAERS Safety Report 4423226-X (Version None)
Quarter: 2004Q3

REPORT INFORMATION
  Report Type: 
  Country: None (occurrence: None)
  Receive Date: 20040805
  Receipt Date: 20040720
  Transmission Date: 20050211
  Serious: Yes (Death, Hospitalization)
  Sender: FDA-Public Use
  Company Number: 236432

PATIENT
  Age: 76 Year
  Sex: Female
  Weight: 55 kg

DRUGS (5)
  1. NOVOSEVEN [Suspect]
     Indication: ACQUIRED HAEMOPHILIA
     Dosage: SEE IMAGE
     Dates: start: 20040407, end: 20040407
  2. THROMBIN LOCAL SOLUTION [Concomitant]
  3. DOPAMINE HCL [Concomitant]
  4. DOBUTAMINE HCL [Concomitant]
  5. METOCLOPRAMIDE [Concomitant]

REACTIONS (7)
  - BACK PAIN [None]
  - BLOOD PRESSURE DECREASED [None]
  - DRUG INEFFECTIVE [None]
  - GINGIVAL BLEEDING [None]
  - HAEMOGLOBIN DECREASED [None]
  - HAEMORRHAGE SUBCUTANEOUS [None]
  - MUSCLE HAEMORRHAGE [None]
